FAERS Safety Report 10085969 (Version 1)
Quarter: 2014Q2

REPORT INFORMATION
  Report Type: Spontaneous
  Country: JP (occurrence: JP)
  Receive Date: 20140418
  Receipt Date: 20140418
  Transmission Date: 20141212
  Serious: Yes (Hospitalization)
  Sender: FDA-Public Use
  Company Number: JP-009507513-1404JPN007438

PATIENT
  Sex: Female

DRUGS (1)
  1. FOSAMAC TABLETS 35MG [Suspect]
     Dosage: 35 MG, QW
     Route: 048

REACTIONS (3)
  - Adverse event [Unknown]
  - Medication error [Unknown]
  - No adverse event [Unknown]
